FAERS Safety Report 5771344-6 (Version None)
Quarter: 2008Q2

REPORT INFORMATION
  Report Type: 
  Country: None (occurrence: None)
  Receive Date: 20080610
  Receipt Date: 20080528
  Transmission Date: 20081010
  Serious: Yes (Death, Other)
  Sender: FDA-Public Use
  Company Number: 2008BI013288

PATIENT
  Age: 53 Year
  Sex: Female
  Weight: 91.173 kg

DRUGS (19)
  1. TYSABRI [Suspect]
     Indication: MULTIPLE SCLEROSIS
     Dosage: 300 MG; QM; IV
     Route: 042
     Dates: start: 20061215
  2. LYRICA [Concomitant]
  3. ASPIRIN [Concomitant]
  4. PROTONIX [Concomitant]
  5. NAMENDA [Concomitant]
  6. PLAVIX [Concomitant]
  7. LIPITOR [Concomitant]
  8. BACLOFEN [Concomitant]
  9. LORAZEPAM [Concomitant]
  10. FLEXERIL [Concomitant]
  11. HYDROCHLOROTHIAZIDE [Concomitant]
  12. TOPROXL XL [Concomitant]
  13. POTASSIUM CHLORIDE [Concomitant]
  14. EFFEXOR [Concomitant]
  15. ASCORBIC ACID [Concomitant]
  16. MULTI-VITAMIN [Concomitant]
  17. TYLENOL [Concomitant]
  18. VITAMIN D WITH CALCIUM [Concomitant]
  19. FIBER CHOICE [Concomitant]

REACTIONS (8)
  - BLOOD CHOLESTEROL INCREASED [None]
  - DEPRESSION [None]
  - GASTRIC DISORDER [None]
  - HYPERTENSION [None]
  - LUNG CANCER METASTATIC [None]
  - METASTASES TO BONE [None]
  - METASTASES TO CENTRAL NERVOUS SYSTEM [None]
  - NERVOUS SYSTEM DISORDER [None]
